FAERS Safety Report 7312869-1 (Version None)
Quarter: 2011Q1

REPORT INFORMATION
  Report Type: 
  Country: None (occurrence: None)
  Receive Date: 20110224
  Receipt Date: 20110217
  Transmission Date: 20110831
  Serious: Yes (Other)
  Sender: FDA-Public Use
  Company Number: US-RB-016608-10

PATIENT
  Age: 46 Year
  Sex: Female

DRUGS (1)
  1. SUBOXONE [Suspect]
     Indication: DRUG DEPENDENCE
     Dosage: DOSING INFORMATION UNKNOWN
     Route: 065

REACTIONS (6)
  - VOMITING [None]
  - HEADACHE [None]
  - CONVULSION [None]
  - SUBSTANCE ABUSE [None]
  - NASOPHARYNGITIS [None]
  - DIZZINESS [None]
